FAERS Safety Report 5225670-X (Version None)
Quarter: 2007Q1

REPORT INFORMATION
  Report Type: 
  Country: None (occurrence: None)
  Receive Date: 20061201
  Receipt Date: 20061027
  Transmission Date: 20070707
  Serious: No
  Sender: FDA-Public Use
  Company Number: US200611000361

PATIENT
  Sex: Female
  Weight: 2.8 kg

DRUGS (4)
  1. CYMBALTA [Suspect]
     Dosage: SEE IMAGE
     Route: 064
     Dates: end: 20060301
  2. CYMBALTA [Suspect]
     Dosage: SEE IMAGE
     Route: 064
     Dates: start: 20050701
  3. TRAZODONE HCL [Concomitant]
  4. CLONAZEPAM [Concomitant]

REACTIONS (2)
  - DRUG EXPOSURE DURING PREGNANCY [None]
  - SOMNOLENCE [None]
